FAERS Safety Report 4941240-2 (Version None)
Quarter: 2006Q1

REPORT INFORMATION
  Report Type: 
  Country: None (occurrence: None)
  Receive Date: 20060310
  Receipt Date: 20060310
  Transmission Date: 20060701
  Serious: Yes (Death, Hospitalization)
  Sender: FDA-Public Use
  Company Number: None

PATIENT
  Sex: Female
  Weight: 20 kg

DRUGS (15)
  1. DOXORUBICIN HCL [Suspect]
     Indication: ANAPLASTIC LARGE CELL LYMPHOMA T- AND NULL-CELL TYPES
     Dosage: 23 MG
     Dates: start: 20051116, end: 20051116
  2. PREDNISONE TAB [Suspect]
     Dosage: 90 MG
     Dates: start: 20051116, end: 20051120
  3. VINBLASTINE SULFATE [Suspect]
     Dosage: 3.8 MG
     Dates: start: 20051116
  4. ALBUTEROL [Concomitant]
  5. ATIVAN [Concomitant]
  6. LASIX [Concomitant]
  7. MIDAZOLAM HCL [Concomitant]
  8. MORPHINE [Concomitant]
  9. PHYTONADIONE [Concomitant]
  10. PULMICORT [Concomitant]
  11. SPIRONOLACTONE [Concomitant]
  12. TPN WITH EMULSION [Concomitant]
  13. VANCOMYCIN [Concomitant]
  14. VECURONIUM BROMIDE [Concomitant]
  15. OXCARBAZEPINE [Concomitant]

REACTIONS (26)
  - ATELECTASIS [None]
  - DILATATION ATRIAL [None]
  - DILATATION VENTRICULAR [None]
  - DYSPNOEA [None]
  - HAEMODIALYSIS [None]
  - HYPOXIA [None]
  - INTERCOSTAL RETRACTION [None]
  - LETHARGY [None]
  - MITRAL VALVE INCOMPETENCE [None]
  - NERVOUS SYSTEM DISORDER [None]
  - ORAL INTAKE REDUCED [None]
  - PALLOR [None]
  - PERICARDIAL EFFUSION [None]
  - PNEUMONIA [None]
  - PULMONARY HYPERTENSION [None]
  - PULMONARY OEDEMA [None]
  - PULMONARY VALVE DISEASE [None]
  - PULMONARY VALVE STENOSIS [None]
  - PULSE PRESSURE DECREASED [None]
  - RALES [None]
  - RENAL FAILURE ACUTE [None]
  - SHOCK [None]
  - TRICUSPID VALVE INCOMPETENCE [None]
  - VENTRICULAR DYSFUNCTION [None]
  - VENTRICULAR SEPTAL DEFECT [None]
  - WHEEZING [None]
